FAERS Safety Report 15810593 (Version 1)
Quarter: 2019Q1

REPORT INFORMATION
  Report Type: Spontaneous
  Country: US (occurrence: US)
  Receive Date: 20190111
  Receipt Date: 20190111
  Transmission Date: 20190417
  Serious: No
  Sender: FDA-Public Use
  Company Number: US-ROCHE-2170872

PATIENT
  Age: 72 Year
  Sex: Male

DRUGS (3)
  1. RITUXAN [Suspect]
     Active Substance: RITUXIMAB
     Indication: PRODUCT USED FOR UNKNOWN INDICATION
     Dosage: ONGOING: UNKNOWN
     Route: 042
     Dates: start: 20180809
  2. RITUXAN [Suspect]
     Active Substance: RITUXIMAB
     Dosage: ONGOING: UNKNOWN
     Route: 042
     Dates: start: 20180809
  3. RITUXAN [Suspect]
     Active Substance: RITUXIMAB
     Dosage: ONGOING: UNKNOWN
     Route: 042
     Dates: start: 20180809

REACTIONS (2)
  - Chills [Unknown]
  - Blood pressure increased [Unknown]

NARRATIVE: CASE EVENT DATE: 20180809
